FAERS Safety Report 21950110 (Version 1)
Quarter: 2023Q1

REPORT INFORMATION
  Report Type: Spontaneous
  Country: US (occurrence: US)
  Receive Date: 20230203
  Receipt Date: 20230203
  Transmission Date: 20230417
  Serious: No
  Sender: FDA-Public Use
  Company Number: US-INCYTE CORPORATION-2023IN000837

PATIENT

DRUGS (1)
  1. JAKAFI [Suspect]
     Active Substance: RUXOLITINIB
     Indication: Polycythaemia vera
     Dosage: 15 MILLIGRAM, BID (TAKE AT ABOUT THE SAME TIME EACH DAY. TAKE WITH OR WITHOUT FOOD)
     Route: 048
     Dates: start: 20230112

REACTIONS (4)
  - Fatigue [Unknown]
  - Ill-defined disorder [Unknown]
  - Decreased activity [Unknown]
  - Insomnia [Unknown]
